FAERS Safety Report 6310565-0 (Version None)
Quarter: 2009Q3

REPORT INFORMATION
  Report Type: 
  Country: None (occurrence: None)
  Receive Date: 20090814
  Receipt Date: 20090801
  Transmission Date: 20100115
  Serious: Yes (Hospitalization)
  Sender: FDA-Public Use
  Company Number: US-AVENTIS-200913405GDDC

PATIENT
  Age: 84 Year
  Sex: Male

DRUGS (9)
  1. MINIRIN MELT [Suspect]
     Indication: NOCTURIA
     Route: 060
     Dates: start: 20071001, end: 20090323
  2. ANDRODERM [Concomitant]
     Indication: HYPOGONADISM
     Route: 062
     Dates: start: 20090201
  3. CARVEDILOL [Concomitant]
     Indication: HYPERTENSION
     Route: 048
     Dates: start: 20090112
  4. LIPITOR [Concomitant]
     Route: 048
     Dates: start: 20080418
  5. LIPITOR [Concomitant]
     Route: 048
     Dates: start: 20060101, end: 20080417
  6. PEPTO-BISMOL [Concomitant]
     Route: 048
     Dates: start: 20071101
  7. TESTIM [Concomitant]
     Indication: HYPOGONADISM
     Dosage: DOSE: 1%
     Route: 062
     Dates: start: 20080101, end: 20090201
  8. RAMIPRIL [Concomitant]
     Indication: HYPERTENSION
     Route: 048
     Dates: start: 20020101
  9. LOPRESSOR [Concomitant]
     Indication: HYPERTENSION
     Route: 048
     Dates: start: 20020101, end: 20090107

REACTIONS (1)
  - CARDIAC FAILURE CONGESTIVE [None]
